FAERS Safety Report 7397989-8 (Version None)
Quarter: 2011Q2

REPORT INFORMATION
  Report Type: 
  Country: None (occurrence: None)
  Receive Date: 20110406
  Receipt Date: 20110325
  Transmission Date: 20111010
  Serious: Yes (Life-Threatening, Hospitalization)
  Sender: FDA-Public Use
  Company Number: DE-GILEAD-E2B_00001166

PATIENT
  Sex: Male
  Weight: 68 kg

DRUGS (3)
  1. AMLODIPINE [Concomitant]
  2. TADALAFIL [Suspect]
     Indication: PULMONARY ARTERIAL HYPERTENSION
     Dosage: 20MG PER DAY
     Route: 048
     Dates: start: 20110318
  3. AMBRISENTAN [Suspect]
     Indication: PULMONARY ARTERIAL HYPERTENSION
     Dosage: 5MG PER DAY
     Route: 048
     Dates: start: 20110318

REACTIONS (1)
  - OEDEMA PERIPHERAL [None]
